FAERS Safety Report 5165431-3 (Version None)
Quarter: 2006Q4

REPORT INFORMATION
  Report Type: 
  Country: None (occurrence: None)
  Receive Date: 20061127
  Receipt Date: 20061109
  Transmission Date: 20070319
  Serious: Yes (Life-Threatening)
  Sender: FDA-Public Use
  Company Number: HQWYE313612MAY06

PATIENT
  Age: 20 Year
  Sex: Female

DRUGS (13)
  1. MYLOTARG [Suspect]
     Indication: ACUTE MYELOID LEUKAEMIA RECURRENT
     Dosage: 9 MG/M^2 1X PER 1 DAY INTRAVENOUS DRIP
     Route: 041
     Dates: start: 20060222, end: 20060222
  2. MYLOTARG [Suspect]
     Indication: ACUTE MYELOID LEUKAEMIA RECURRENT
     Dosage: 9 MG/M^2 1X PER 1 DAY INTRAVENOUS DRIP
     Route: 041
     Dates: start: 20060310, end: 20060310
  3. ITRACONAZOLE [Concomitant]
  4. SULFAMETHOXAZOLE + TRIMETHOPRIM [Concomitant]
  5. OMEPRAZOLE [Concomitant]
  6. NAUZELIN (DOMPERIDONE) [Concomitant]
  7. FAMOTIDINE [Concomitant]
  8. HEPARIN SODIUM [Concomitant]
  9. GATIFLOXACIN [Concomitant]
  10. CYTARABINE [Concomitant]
  11. CYTARABINE [Concomitant]
  12. ETOPOSIDE [Concomitant]
  13. NOVANTRONE [Concomitant]

REACTIONS (12)
  - BLOOD FIBRINOGEN INCREASED [None]
  - CYSTITIS HAEMORRHAGIC [None]
  - ELECTROCARDIOGRAM QT PROLONGED [None]
  - FIBRIN DEGRADATION PRODUCTS INCREASED [None]
  - FUNGAL SEPSIS [None]
  - HEPATIC FUNCTION ABNORMAL [None]
  - HYPOKALAEMIA [None]
  - PLATELET COUNT DECREASED [None]
  - SEPSIS [None]
  - STAPHYLOCOCCAL SEPSIS [None]
  - TORSADE DE POINTES [None]
  - VENTRICULAR FLUTTER [None]
